FAERS Safety Report 5874338-5 (Version None)
Quarter: 2008Q3

REPORT INFORMATION
  Report Type: 
  Country: None (occurrence: None)
  Receive Date: 20080908
  Receipt Date: 20080902
  Transmission Date: 20090109
  Serious: Yes (Death)
  Sender: FDA-Public Use
  Company Number: TW-ABBOTT-08P-153-0469887-00

PATIENT
  Sex: Female
  Weight: 60 kg

DRUGS (2)
  1. REDUCTIL 10MG [Suspect]
     Indication: OVERWEIGHT
     Route: 048
     Dates: start: 20080719, end: 20080810
  2. CONTRACEPTIVE DRUG [Concomitant]
     Indication: CONTRACEPTION

REACTIONS (6)
  - ABORTION INDUCED [None]
  - AGITATION [None]
  - LETHARGY [None]
  - NAUSEA [None]
  - PALPITATIONS [None]
  - VOMITING [None]
